FAERS Safety Report 14834733 (Version 5)
Quarter: 2018Q2

REPORT INFORMATION
  Report Type: Report from Study
  Country: None (occurrence: DK)
  Receive Date: 20180501
  Receipt Date: 20180604
  Transmission Date: 20180711
  Serious: Yes (Hospitalization)
  Sender: FDA-Public Use
  Company Number: DK-ABBVIE-18P-044-2332335-00

PATIENT
  Age: 80 Year
  Sex: Female
  Weight: 66.7 kg

DRUGS (25)
  1. VENETOCLAX. [Suspect]
     Active Substance: VENETOCLAX
     Route: 048
     Dates: start: 20180430
  2. SODIUM CHLORIDE. [Concomitant]
     Active Substance: SODIUM CHLORIDE
     Indication: TUMOUR LYSIS SYNDROME
     Route: 042
     Dates: start: 20180320, end: 20180320
  3. VENETOCLAX. [Suspect]
     Active Substance: VENETOCLAX
     Route: 048
     Dates: start: 20180320, end: 20180320
  4. ALLOPURINOL. [Concomitant]
     Active Substance: ALLOPURINOL
     Indication: PROPHYLAXIS
  5. ORAL FLUIDS [Concomitant]
     Route: 048
     Dates: start: 20180321, end: 20180321
  6. SODIUM CHLORIDE. [Concomitant]
     Active Substance: SODIUM CHLORIDE
     Indication: FLUID REPLACEMENT
  7. AZACITIDINE. [Suspect]
     Active Substance: AZACITIDINE
     Indication: ACUTE MYELOID LEUKAEMIA
     Dosage: DAYS 1-7 OF EACH 28-DAY CYCLE
     Route: 058
     Dates: start: 20180319, end: 20180325
  8. RASBURICASE [Concomitant]
     Active Substance: RASBURICASE
     Indication: PROPHYLAXIS
  9. ALLOPURINOL. [Concomitant]
     Active Substance: ALLOPURINOL
     Indication: TUMOUR LYSIS SYNDROME
     Route: 048
     Dates: start: 20180315
  10. ORAL FLUIDS [Concomitant]
     Indication: PROPHYLAXIS
     Route: 048
     Dates: start: 20180319, end: 20180319
  11. VENETOCLAX. [Suspect]
     Active Substance: VENETOCLAX
     Indication: ACUTE MYELOID LEUKAEMIA
     Route: 048
     Dates: start: 20180319, end: 20180319
  12. ORAL FLUIDS [Concomitant]
     Indication: TUMOUR LYSIS SYNDROME
     Route: 048
     Dates: start: 20180318, end: 20180318
  13. FUROSEMIDE. [Concomitant]
     Active Substance: FUROSEMIDE
     Route: 048
     Dates: start: 20180323, end: 20180403
  14. RASBURICASE [Concomitant]
     Active Substance: RASBURICASE
     Indication: TUMOUR LYSIS SYNDROME
     Route: 042
     Dates: start: 20180319, end: 20180319
  15. ORAL FLUIDS [Concomitant]
     Indication: FLUID REPLACEMENT
     Route: 048
     Dates: start: 20180320, end: 20180320
  16. MIX OF IV FLUIDS [Concomitant]
     Indication: TUMOUR LYSIS SYNDROME
     Route: 042
     Dates: start: 20180319, end: 20180319
  17. MIX OF IV FLUIDS [Concomitant]
     Indication: PROPHYLAXIS
  18. FUROSEMIDE. [Concomitant]
     Active Substance: FUROSEMIDE
     Indication: OEDEMA PERIPHERAL
     Route: 040
     Dates: start: 20180315, end: 20180323
  19. FUROSEMIDE. [Concomitant]
     Active Substance: FUROSEMIDE
     Route: 048
     Dates: start: 20180404
  20. SODIUM CHLORIDE. [Concomitant]
     Active Substance: SODIUM CHLORIDE
     Indication: PROPHYLAXIS
     Route: 042
     Dates: start: 20180321, end: 20180321
  21. LOSARSTAD COMP [Concomitant]
     Active Substance: HYDROCHLOROTHIAZIDE\LOSARTAN POTASSIUM
     Indication: HYPERTENSION
     Dosage: 50 + 12.5 MG
     Route: 048
  22. AZACITIDINE. [Suspect]
     Active Substance: AZACITIDINE
     Dosage: DAYS 1-7 OF EACH 28-DAY CYCLE
     Route: 058
     Dates: start: 20180430
  23. VENETOCLAX. [Suspect]
     Active Substance: VENETOCLAX
     Route: 048
     Dates: start: 20180321, end: 20180415
  24. MIX OF IV FLUIDS [Concomitant]
     Indication: FLUID REPLACEMENT
  25. OXAZEPAM. [Concomitant]
     Active Substance: OXAZEPAM
     Indication: ANXIOLYTIC THERAPY
     Route: 048
     Dates: start: 20180315

REACTIONS (6)
  - Pyrexia [Not Recovered/Not Resolved]
  - C-reactive protein increased [Not Recovered/Not Resolved]
  - Neutropenia [Not Recovered/Not Resolved]
  - Culture urine positive [Recovered/Resolved]
  - Escherichia urinary tract infection [Recovered/Resolved]
  - Cough [Not Recovered/Not Resolved]

NARRATIVE: CASE EVENT DATE: 20180423
